FAERS Safety Report 9364503 (Version 2)
Quarter: 2014Q2

REPORT INFORMATION
  Report Type: Spontaneous
  Country: US (occurrence: US)
  Receive Date: 20130624
  Receipt Date: 20140506
  Transmission Date: 20141212
  Serious: No
  Sender: FDA-Public Use
  Company Number: US-GLAXOSMITHKLINE-A1028009A

PATIENT
  Age: 39 Year
  Sex: Female
  Weight: 102.3 kg

DRUGS (6)
  1. BENLYSTA [Suspect]
     Indication: PRODUCT USED FOR UNKNOWN INDICATION
     Route: 042
     Dates: start: 20130501
  2. PLAQUENIL [Concomitant]
  3. TRAMADOL [Concomitant]
  4. MOBIC [Concomitant]
  5. ZOLOFT [Concomitant]
  6. ELAVIL [Concomitant]

REACTIONS (7)
  - Nausea [Recovered/Resolved]
  - Vomiting [Recovered/Resolved]
  - Headache [Recovered/Resolved]
  - Fatigue [Recovered/Resolved]
  - Arthralgia [Recovered/Resolved]
  - Pyrexia [Recovered/Resolved]
  - Feeling jittery [Recovered/Resolved]
